FAERS Safety Report 22145841 (Version 1)
Quarter: 2023Q1

REPORT INFORMATION
  Report Type: Spontaneous
  Country: US (occurrence: None)
  Receive Date: 20230327
  Receipt Date: 20230327
  Transmission Date: 20230418
  Serious: No
  Sender: FDA-Public Use
  Company Number: None

PATIENT
  Age: 66 Year
  Sex: Female
  Weight: 37.19 kg

DRUGS (18)
  1. CAPECITABINE [Suspect]
     Active Substance: CAPECITABINE
     Indication: Neoplasm malignant
     Dosage: FREQUENCY : TWICE A DAY;?
     Route: 048
  2. CAPECITABINE [Suspect]
     Active Substance: CAPECITABINE
  3. ALBUTEROL [Concomitant]
  4. CALCIUM [Concomitant]
     Active Substance: CALCIUM
  5. MAGNESIUM [Concomitant]
     Active Substance: MAGNESIUM
  6. ZINC [Concomitant]
     Active Substance: ZINC
  7. LOPERAMIDE [Concomitant]
  8. LORAZEPAM [Concomitant]
  9. OMEPRAZOLE [Concomitant]
  10. ONDANSETRON [Concomitant]
  11. PERCOCET [Concomitant]
  12. POTASSIUM [Concomitant]
  13. PRENATAL VITAMINS [Concomitant]
  14. PROCHLORPERAZINE [Concomitant]
  15. DICLOFENAC [Concomitant]
  16. SILVER SULFADIAZINE [Concomitant]
  17. SUCRALAFATE [Concomitant]
  18. VOLTAREN [Concomitant]

REACTIONS (1)
  - Drug ineffective [None]
